FAERS Safety Report 26115397 (Version 1)
Quarter: 2025Q4

REPORT INFORMATION
  Report Type: Spontaneous
  Country: US (occurrence: US)
  Receive Date: 20251203
  Receipt Date: 20251203
  Transmission Date: 20260117
  Serious: Yes (Hospitalization)
  Sender: CIPLA
  Company Number: US-MLMSERVICE-20251114-PI711624-00082-2

PATIENT

DRUGS (3)
  1. CARBOPLATIN [Suspect]
     Active Substance: CARBOPLATIN
     Indication: Congenital retinoblastoma
     Dosage: 30 MILLIGRAM, (VOLUME: 20 ML; 4 CYCLES; ALTERNATE THE EYE RECEIVING ALL THREE AGENTS)
     Route: 013
  2. TOPOTECAN [Suspect]
     Active Substance: TOPOTECAN HYDROCHLORIDE
     Indication: Congenital retinoblastoma
     Dosage: 0.3 MILLIGRAM, (VOLUME: 20 ML; 4 CYCLES; ALTERNATE THE EYE RECEIVING ALL THREE AGENTS)
     Route: 013
  3. MELPHALAN [Suspect]
     Active Substance: MELPHALAN
     Indication: Congenital retinoblastoma
     Dosage: 4 MILLIGRAM, (VOLUME: 20 ML ; 4 CYCLES; ALTERNATE THE EYE RECEIVING ALL THREE AGENTS)
     Route: 013

REACTIONS (4)
  - Abnormal behaviour [Recovered/Resolved]
  - Cerebral disorder [Recovered/Resolved]
  - Magnetic resonance imaging head abnormal [Recovered/Resolved]
  - Visual impairment [Recovered/Resolved]
